FAERS Safety Report 14411159 (Version 1)
Quarter: 2018Q1

REPORT INFORMATION
  Report Type: Spontaneous
  Country: US (occurrence: US)
  Receive Date: 20180117
  Receipt Date: 20180117
  Transmission Date: 20180509
  Serious: No
  Sender: FDA-Public Use
  Company Number: None

PATIENT
  Age: 64 Year
  Sex: Male

DRUGS (1)
  1. ADEMPAS [Suspect]
     Active Substance: RIOCIGUAT
     Indication: PULMONARY HYPERTENSION
     Route: 048
     Dates: start: 20171005, end: 20180105

REACTIONS (4)
  - Vomiting [None]
  - Constipation [None]
  - Therapy cessation [None]
  - Nausea [None]

NARRATIVE: CASE EVENT DATE: 20180105
